FAERS Safety Report 12647319 (Version 4)
Quarter: 2016Q4

REPORT INFORMATION
  Report Type: Report from Study
  Country: CO (occurrence: CO)
  Receive Date: 20160812
  Receipt Date: 20161219
  Transmission Date: 20170207
  Serious: Yes (Death, Hospitalization)
  Sender: FDA-Public Use
  Company Number: PHHY2016CO110155

PATIENT
  Age: 49 Year
  Sex: Female

DRUGS (2)
  1. REVOLADE [Suspect]
     Active Substance: ELTROMBOPAG
     Dosage: 50 MG, QD
     Route: 048
  2. REVOLADE [Suspect]
     Active Substance: ELTROMBOPAG
     Indication: IMMUNE THROMBOCYTOPENIC PURPURA
     Dosage: 25 MG, 4 TABLETS OF REVOLADE DAILY
     Route: 048
     Dates: start: 20160611

REACTIONS (8)
  - Death [Fatal]
  - Depression [Unknown]
  - Malaise [Unknown]
  - Vaginal haemorrhage [Unknown]
  - General physical health deterioration [Unknown]
  - Pain [Recovered/Resolved]
  - Bone marrow failure [Unknown]
  - Incorrect dose administered [Unknown]

NARRATIVE: CASE EVENT DATE: 20160807
